FAERS Safety Report 12227993 (Version 1)
Quarter: 2016Q2

REPORT INFORMATION
  Report Type: Spontaneous
  Country: US (occurrence: US)
  Receive Date: 20160401
  Receipt Date: 20160401
  Transmission Date: 20160815
  Serious: No
  Sender: FDA-Public Use
  Company Number: US-ASTRAZENECA-2016SE18431

PATIENT
  Age: 879 Month
  Sex: Female
  Weight: 66.7 kg

DRUGS (11)
  1. ZOLOFT [Suspect]
     Active Substance: SERTRALINE HYDROCHLORIDE
     Indication: ABNORMAL BEHAVIOUR
     Dosage: NON AZ PRODUCT, MFG BY PFIZER
     Route: 065
  2. TREPROSTINIL [Suspect]
     Active Substance: TREPROSTINIL
     Indication: PULMONARY ARTERIAL HYPERTENSION
     Route: 048
     Dates: start: 20150824
  3. TREPROSTINIL [Suspect]
     Active Substance: TREPROSTINIL
     Indication: PULMONARY ARTERIAL HYPERTENSION
     Route: 048
  4. TREPROSTINIL [Suspect]
     Active Substance: TREPROSTINIL
     Indication: PULMONARY ARTERIAL HYPERTENSION
     Dosage: NON AZ PRODUCT, MFG BY UNITED THERAPEUTICS
     Route: 048
  5. TREPROSTINIL [Suspect]
     Active Substance: TREPROSTINIL
     Indication: PULMONARY ARTERIAL HYPERTENSION
     Route: 048
  6. TREPROSTINIL [Suspect]
     Active Substance: TREPROSTINIL
     Indication: PULMONARY ARTERIAL HYPERTENSION
     Route: 048
  7. TREPROSTINIL [Suspect]
     Active Substance: TREPROSTINIL
     Indication: PULMONARY ARTERIAL HYPERTENSION
     Route: 048
  8. TREPROSTINIL [Suspect]
     Active Substance: TREPROSTINIL
     Indication: PULMONARY ARTERIAL HYPERTENSION
     Route: 048
  9. SEROQUEL [Suspect]
     Active Substance: QUETIAPINE FUMARATE
     Indication: ABNORMAL BEHAVIOUR
     Route: 048
  10. TREPROSTINIL [Suspect]
     Active Substance: TREPROSTINIL
     Indication: PULMONARY ARTERIAL HYPERTENSION
     Route: 048
     Dates: start: 20150824
  11. AMBRISENTAN [Concomitant]
     Active Substance: AMBRISENTAN

REACTIONS (3)
  - Insomnia [Unknown]
  - Oxygen saturation decreased [Unknown]
  - Condition aggravated [Not Recovered/Not Resolved]

NARRATIVE: CASE EVENT DATE: 201511
